FAERS Safety Report 5029510-3 (Version None)
Quarter: 2006Q2

REPORT INFORMATION
  Report Type: 
  Country: None (occurrence: None)
  Receive Date: 20060620
  Receipt Date: 20050823
  Transmission Date: 20061013
  Serious: Yes (Other)
  Sender: FDA-Public Use
  Company Number: US-GLAXOSMITHKLINE-A0571496A

PATIENT
  Age: 59 Year
  Sex: Male

DRUGS (6)
  1. ZYBAN [Suspect]
     Dosage: 150MG TWICE PER DAY
     Route: 048
     Dates: start: 20050813, end: 20050820
  2. ASPIRIN [Concomitant]
  3. TYLENOL (CAPLET) [Concomitant]
  4. METOPROLOL TARTRATE [Concomitant]
  5. PRAVACHOL [Concomitant]
  6. LISINOPRIL [Concomitant]

REACTIONS (5)
  - AGGRESSION [None]
  - DEPRESSION [None]
  - EYE SWELLING [None]
  - FATIGUE [None]
  - MALAISE [None]
